FAERS Safety Report 7908708-8 (Version None)
Quarter: 2011Q4

REPORT INFORMATION
  Report Type: 
  Country: None (occurrence: None)
  Receive Date: 20111111
  Receipt Date: 20111102
  Transmission Date: 20120403
  Serious: Yes (Hospitalization)
  Sender: FDA-Public Use
  Company Number: US-BAYER-201039245NA

PATIENT
  Age: 45 Year
  Sex: Female
  Weight: 100.23 kg

DRUGS (5)
  1. YAZ [Suspect]
     Indication: PRODUCT USED FOR UNKNOWN INDICATION
     Route: 048
     Dates: start: 20060925, end: 20061214
  2. YAZ [Suspect]
     Indication: HORMONE THERAPY
  3. WELLBUTRIN [Concomitant]
     Dosage: UNK
     Dates: start: 20050701
  4. ZOLOFT [Concomitant]
     Dosage: UNK
     Dates: start: 20050701
  5. ADVAIR DISKUS 100/50 [Concomitant]
     Dosage: UNK
     Dates: start: 20050701

REACTIONS (3)
  - DEEP VEIN THROMBOSIS [None]
  - PULMONARY EMBOLISM [None]
  - CHOLECYSTECTOMY [None]
